FAERS Safety Report 25172901 (Version 1)
Quarter: 2025Q2

REPORT INFORMATION
  Report Type: Spontaneous
  Country: US (occurrence: None)
  Receive Date: 20250408
  Receipt Date: 20250408
  Transmission Date: 20250717
  Serious: Yes (Disabling)
  Sender: FDA-CTU
  Company Number: None

PATIENT
  Age: 28 Year
  Sex: Female
  Weight: 81.9 kg

DRUGS (12)
  1. ZEPBOUND [Suspect]
     Active Substance: TIRZEPATIDE
     Indication: Polycystic ovaries
     Route: 058
     Dates: start: 20241031
  2. ZEPBOUND [Suspect]
     Active Substance: TIRZEPATIDE
     Indication: Weight control
  3. KYLEENA [Concomitant]
     Active Substance: LEVONORGESTREL
  4. ESTRADIOL BIRTH CONTROL [Concomitant]
  5. VALACYCLOVIR [Concomitant]
     Active Substance: VALACYCLOVIR HYDROCHLORIDE
  6. LYSINE [Concomitant]
     Active Substance: LYSINE
  7. MONOLAURIN [Concomitant]
  8. VITAMIN D3+K2 [Concomitant]
  9. MAGNESIUM G [Concomitant]
  10. FISH OIL\OMEGA-3 FATTY ACIDS [Concomitant]
     Active Substance: FISH OIL\OMEGA-3 FATTY ACIDS
  11. VITAMIN B COMPLEX [Concomitant]
     Active Substance: CYANOCOBALAMIN\DEXPANTHENOL\NIACINAMIDE\PYRIDOXINE HYDROCHLORIDE\RIBOFLAVIN 5^-PHOSPHATE SODIUM\THIA
  12. B12 [Concomitant]

REACTIONS (1)
  - Herpes simplex [None]

NARRATIVE: CASE EVENT DATE: 20241102
